FAERS Safety Report 8286208-6 (Version None)
Quarter: 2012Q2

REPORT INFORMATION
  Report Type: 
  Country: None (occurrence: None)
  Receive Date: 20120416
  Receipt Date: 20120409
  Transmission Date: 20120825
  Serious: No
  Sender: FDA-Public Use
  Company Number: US-PFIZER INC-2012088534

PATIENT
  Sex: Female
  Weight: 85 kg

DRUGS (3)
  1. ACCURETIC [Concomitant]
     Indication: HYPERTENSION
     Dosage: UNK
  2. EFFEXOR XR [Suspect]
     Indication: DEPRESSION
     Dosage: 225 MG (75 MG THREE), 1X/DAY
     Route: 048
     Dates: end: 20120301
  3. EFFEXOR XR [Suspect]
     Dosage: 75 MG, 1X/DAY
     Route: 048
     Dates: start: 20120301, end: 20120405

REACTIONS (1)
  - MALAISE [None]
